FAERS Safety Report 4334695-8 (Version None)
Quarter: 2004Q2

REPORT INFORMATION
  Report Type: 
  Country: None (occurrence: None)
  Receive Date: 20040407
  Receipt Date: 20040407
  Transmission Date: 20050107
  Serious: Yes (Other)
  Sender: FDA-Public Use
  Company Number: None

PATIENT
  Sex: Female
  Weight: 62.5964 kg

DRUGS (3)
  1. PAXIL [Suspect]
     Indication: ANXIETY
     Dosage: 25 MG ONCE DAILY ORAL
     Route: 048
     Dates: start: 20010101, end: 20040301
  2. PAXIL [Suspect]
     Indication: DEPRESSION
     Dosage: 25 MG ONCE DAILY ORAL
     Route: 048
     Dates: start: 20010101, end: 20040301
  3. PAXIL CR [Suspect]

REACTIONS (8)
  - DEPRESSION [None]
  - DIZZINESS [None]
  - FEELING HOT [None]
  - HYPERHIDROSIS [None]
  - MIGRAINE [None]
  - NERVOUSNESS [None]
  - SUICIDAL IDEATION [None]
  - TREMOR [None]
